FAERS Safety Report 10024280 (Version 2)
Quarter: 2014Q1

REPORT INFORMATION
  Report Type: Spontaneous
  Country: US (occurrence: None)
  Receive Date: 20140129
  Receipt Date: 20140218
  Transmission Date: 20141002
  Serious: Yes (Hospitalization)
  Sender: FDA-Public Use
  Company Number: 2013US008755

PATIENT
  Age: 74 Year
  Sex: Male

DRUGS (1)
  1. GLASSIA [Suspect]
     Indication: ALPHA-1 ANTI-TRYPSIN DEFICIENCY
     Route: 042

REACTIONS (8)
  - Pneumothorax [None]
  - Chronic obstructive pulmonary disease [None]
  - Acute respiratory failure [None]
  - Ventricular extrasystoles [None]
  - Acidosis [None]
  - Pneumothorax spontaneous [None]
  - Pneumothorax [None]
  - Chronic obstructive pulmonary disease [None]
